FAERS Safety Report 18033435 (Version 1)
Quarter: 2020Q3

REPORT INFORMATION
  Report Type: Spontaneous
  Country: GB (occurrence: GB)
  Receive Date: 20200716
  Receipt Date: 20200716
  Transmission Date: 20201103
  Serious: Yes (Disabling, Other)
  Sender: FDA-Public Use
  Company Number: GB-PERRIGO-20GB009785

PATIENT

DRUGS (2)
  1. FLUOXETINE [Concomitant]
     Active Substance: FLUOXETINE HYDROCHLORIDE
  2. NORZOL 40MG/ML PL00427/0068 [Suspect]
     Active Substance: METRONIDAZOLE BENZOATE
     Indication: HEADACHE
     Dosage: 200MG, 400MG
     Route: 048
     Dates: start: 20200617, end: 20200618

REACTIONS (3)
  - Lymphadenopathy [Not Recovered/Not Resolved]
  - Pain [Unknown]
  - Swelling face [Not Recovered/Not Resolved]

NARRATIVE: CASE EVENT DATE: 20200617
